FAERS Safety Report 17407898 (Version 2)
Quarter: 2022Q4

REPORT INFORMATION
  Report Type: Spontaneous
  Country: US (occurrence: US)
  Receive Date: 20200212
  Receipt Date: 20221207
  Transmission Date: 20230113
  Serious: Yes (Other)
  Sender: FDA-Public Use
  Company Number: US-PFIZER INC-2017488304

PATIENT
  Age: 71 Year
  Sex: Female
  Weight: 78.912 kg

DRUGS (11)
  1. XELJANZ XR [Suspect]
     Active Substance: TOFACITINIB CITRATE
     Indication: Rheumatoid arthritis
     Dosage: 11 MG, 1X/DAY
     Route: 048
     Dates: start: 20171009
  2. HYDROXYCHLOROQUINE [Concomitant]
     Active Substance: HYDROXYCHLOROQUINE
     Indication: Rheumatoid arthritis
     Dosage: 200 MG, 2X/DAY
     Route: 048
  3. LEFLUNOMIDE [Concomitant]
     Active Substance: LEFLUNOMIDE
     Indication: Rheumatoid arthritis
     Dosage: 20 MG, 1X/DAY
     Route: 048
  4. AMLODIPINE [Concomitant]
     Active Substance: AMLODIPINE BESYLATE
     Indication: Blood pressure abnormal
     Dosage: 5 MG, 1X/DAY [5MG TABLET BY MOUTH ONCE A DAY]
     Route: 048
  5. LISINOPRIL [Concomitant]
     Active Substance: LISINOPRIL
     Indication: Blood pressure abnormal
     Dosage: 10 MG, 1X/DAY [10MG TABLET BY MOUTH ONCE A DAY]
     Route: 048
  6. TEMAZEPAM [Concomitant]
     Active Substance: TEMAZEPAM
     Indication: Sleep disorder
     Dosage: 30 MG, 1X/DAY [30MG CAPSULE BY MOUTH ONCE A DAY]
     Route: 048
  7. SERTRALINE [Concomitant]
     Active Substance: SERTRALINE HYDROCHLORIDE
     Indication: Depression
     Dosage: 200 MG, DAILY [100MG TABLET BY MOUTH TAKES 2 EVERY NIGHT]
     Route: 048
  8. ATORVASTATIN [Concomitant]
     Active Substance: ATORVASTATIN
     Indication: Blood cholesterol abnormal
     Dosage: 40 MG, 1X/DAY [40MG TABLET BY MOUTH ONCE A DAY AT NIGHT]
     Route: 048
  9. TRAMADOL [Concomitant]
     Active Substance: TRAMADOL
     Indication: Arthritis
     Dosage: 50 MG, AS NEEDED [50MG TABLET BY MOUTH AS NEEDED]
     Route: 048
     Dates: start: 2005
  10. TRAMADOL [Concomitant]
     Active Substance: TRAMADOL
     Indication: Back pain
  11. CHOLESTYRAMINE [Concomitant]
     Active Substance: CHOLESTYRAMINE
     Indication: Irritable bowel syndrome
     Dosage: UNK UNK, 1X/DAY [9GM PATCH WITH 4 GRAMS OF THE CHOLESTYRAMINE RESIN: MIXES INTO WATER EVERY MORNING]

REACTIONS (6)
  - Chronic kidney disease [Unknown]
  - Musculoskeletal stiffness [Unknown]
  - Arthralgia [Unknown]
  - Condition aggravated [Unknown]
  - Glomerular filtration rate decreased [Unknown]
  - Cold-stimulus headache [Unknown]
